FAERS Safety Report 19050563 (Version 1)
Quarter: 2021Q1

REPORT INFORMATION
  Report Type: Spontaneous
  Country: GB (occurrence: GB)
  Receive Date: 20210324
  Receipt Date: 20210324
  Transmission Date: 20210420
  Serious: Yes (Death, Hospitalization)
  Sender: FDA-Public Use
  Company Number: GB-TEVA-2021-GB-1891646

PATIENT
  Age: 60 Year
  Sex: Male
  Weight: 70 kg

DRUGS (17)
  1. RIVAROXABAN [Concomitant]
     Active Substance: RIVAROXABAN
     Dosage: 20 MILLIGRAM DAILY;
  2. ASPIRIN. [Concomitant]
     Active Substance: ASPIRIN
     Dosage: 75 MILLIGRAM DAILY;
  3. LANSOPRAZOLE. [Concomitant]
     Active Substance: LANSOPRAZOLE
     Dosage: 60 MILLIGRAM DAILY; 30 MG
  4. VENTOLIN [Concomitant]
     Active Substance: ALBUTEROL SULFATE
     Dosage: 100 MICROGRAM
     Route: 055
  5. HYOSCINE BUTYLBROMIDE [Concomitant]
     Active Substance: BUTYLSCOPOLAMINE BROMIDE
     Dosage: 80 MILLIGRAM DAILY; 20 MG
  6. PARACETAMOL [Concomitant]
     Active Substance: ACETAMINOPHEN
     Dosage: 1000 MG
  7. SALBUTAMOL [Concomitant]
     Active Substance: ALBUTEROL
     Dosage: 2.5MG/2.5ML
  8. BISOPROLOL [Concomitant]
     Active Substance: BISOPROLOL
     Dosage: 5 MILLIGRAM DAILY;
  9. LORATADINE. [Concomitant]
     Active Substance: LORATADINE
     Dosage: 10 MILLIGRAM DAILY;
  10. MOMETASONE [Concomitant]
     Active Substance: MOMETASONE
     Dosage: 50 MICROGRAM
     Route: 045
  11. TRAMADOL. [Concomitant]
     Active Substance: TRAMADOL
     Dosage: 300 MILLIGRAM DAILY; 150 MG
  12. CARBOCISTEINE [Concomitant]
     Active Substance: CARBOCYSTEINE
     Dosage: 1125 MILLIGRAM DAILY; 375 MG
  13. CALCIUM AND COLECALCIFEROL [Concomitant]
     Dosage: 4 DOSAGE FORMS DAILY; COLECALCIFEROL 22U/CALCIUM CARBONATE 750MG, UNIT DOSE : 2 DOSAGE FORMS
  14. FOLIC ACID. [Concomitant]
     Active Substance: FOLIC ACID
     Dosage: 5 MILLIGRAM DAILY;
  15. FOSTAIR NEXTHALER [Concomitant]
     Active Substance: BECLOMETHASONE DIPROPIONATE\FORMOTEROL FUMARATE
     Dosage: 100 MICROGRAM
  16. RAMIPRIL. [Suspect]
     Active Substance: RAMIPRIL
     Dosage: 5 MILLIGRAM DAILY; AT NIGHT
     Route: 048
  17. AZITHROMYCIN ANHYDROUS. [Concomitant]
     Active Substance: AZITHROMYCIN ANHYDROUS
     Dosage: MONDAY, WEDNESDAY + FRIDAY, 250 MG

REACTIONS (8)
  - Hepatic ischaemia [Unknown]
  - Acute hepatic failure [Fatal]
  - Pneumonia [Unknown]
  - Hypotension [Unknown]
  - Hepatic necrosis [Unknown]
  - Abdominal pain [Unknown]
  - Jaundice [Unknown]
  - Multiple organ dysfunction syndrome [Unknown]

NARRATIVE: CASE EVENT DATE: 20210131
